FAERS Safety Report 7336106-7 (Version None)
Quarter: 2011Q1

REPORT INFORMATION
  Report Type: 
  Country: None (occurrence: None)
  Receive Date: 20110307
  Receipt Date: 20110301
  Transmission Date: 20110831
  Serious: Yes (Other)
  Sender: FDA-Public Use
  Company Number: US-SANOFI-AVENTIS-2010SA068890

PATIENT
  Sex: Female
  Weight: 118 kg

DRUGS (14)
  1. APIDRA [Suspect]
     Dosage: DOSE:15 UNIT(S)
     Route: 058
     Dates: start: 20090907, end: 20100601
  2. DIPHENHYDRAMINE HYDROCHLORIDE [Concomitant]
  3. MICARDIS HCT [Concomitant]
     Indication: BLOOD PRESSURE
     Dates: start: 20100101
  4. METOPROLOL [Concomitant]
     Dates: start: 20100405
  5. NORVASC [Concomitant]
     Dates: start: 20100720, end: 20100918
  6. ASPIRIN [Concomitant]
     Dates: start: 20100914
  7. ACETAMINOPHEN [Concomitant]
  8. NITROGLYCERIN [Concomitant]
     Dates: end: 20100916
  9. INSULIN DETEMIR [Suspect]
     Dosage: DOSE:35 UNIT(S)
     Route: 065
  10. PLAVIX [Concomitant]
     Dates: start: 20060301
  11. LISINOPRIL [Concomitant]
     Dates: start: 20100405, end: 20100918
  12. ZOCOR [Concomitant]
     Dates: start: 20100702, end: 20100918
  13. APIDRA [Suspect]
     Dosage: DOSE:5 UNIT(S)
     Route: 065
     Dates: start: 20090101
  14. NEBIVOLOL [Concomitant]
     Dates: start: 20100101

REACTIONS (5)
  - DIABETES MELLITUS INADEQUATE CONTROL [None]
  - MYOCARDIAL INFARCTION [None]
  - NAUSEA [None]
  - SALIVARY HYPERSECRETION [None]
  - ERUCTATION [None]
